FAERS Safety Report 7817142-0 (Version None)
Quarter: 2011Q4

REPORT INFORMATION
  Report Type: 
  Country: None (occurrence: None)
  Receive Date: 20111017
  Receipt Date: 20111017
  Transmission Date: 20120403
  Serious: Yes (Other)
  Sender: FDA-Public Use
  Company Number: None

PATIENT
  Age: 44 Year
  Sex: Female
  Weight: 58.967 kg

DRUGS (1)
  1. PREDNISONE [Suspect]
     Indication: TINNITUS
     Dosage: 3

REACTIONS (6)
  - FEELING HOT [None]
  - CHILLS [None]
  - CHEST PAIN [None]
  - HEART RATE INCREASED [None]
  - DYSPNOEA [None]
  - HYPERHIDROSIS [None]
